FAERS Safety Report 9123618 (Version 2)
Quarter: 2013Q1

REPORT INFORMATION
  Report Type: Report from Study
  Country: AU (occurrence: AU)
  Receive Date: 20130227
  Receipt Date: 20130228
  Transmission Date: 20140127
  Serious: Yes (Other)
  Sender: FDA-Public Use
  Company Number: AU-ROCHE-1195871

PATIENT
  Age: 78 Year
  Sex: Male

DRUGS (16)
  1. ACTEMRA [Suspect]
     Indication: RHEUMATOID ARTHRITIS
     Route: 042
     Dates: start: 20110519
  2. CRESTOR [Concomitant]
     Indication: HYPERLIPIDAEMIA
     Route: 048
  3. DUODART [Concomitant]
     Indication: BENIGN PROSTATIC HYPERPLASIA
     Route: 048
  4. ENDONE [Concomitant]
     Indication: PAIN
     Route: 048
  5. ACTONEL [Concomitant]
     Indication: OSTEOPOROSIS
  6. GTN PATCH [Concomitant]
     Route: 065
  7. FRUSEMIDE [Concomitant]
     Route: 065
  8. MEGAFOL [Concomitant]
     Indication: RHEUMATOID ARTHRITIS
     Route: 065
  9. MOGADON [Concomitant]
     Indication: INSOMNIA
     Route: 065
  10. NEXIUM [Concomitant]
     Route: 065
  11. OXYCONTIN [Concomitant]
     Indication: PAIN
     Route: 065
  12. PANAMAX [Concomitant]
     Indication: PAIN
     Route: 065
  13. STEMETIL [Concomitant]
     Route: 065
  14. PLAVIX [Concomitant]
     Route: 065
  15. VENTOLIN INHALER [Concomitant]
     Indication: ASTHMA
     Route: 065
  16. LOVAN [Concomitant]
     Indication: DEPRESSION
     Route: 065

REACTIONS (1)
  - Chest pain [Recovered/Resolved]
